FAERS Safety Report 9309904 (Version 1)
Quarter: 2013Q2

REPORT INFORMATION
  Report Type: Spontaneous
  Country: US (occurrence: US)
  Receive Date: 20130526
  Receipt Date: 20130526
  Transmission Date: 20140414
  Serious: No
  Sender: FDA-Public Use
  Company Number: US-ASTRAZENECA-2013SE31819

PATIENT
  Age: 81 Year
  Sex: Male
  Weight: 99.8 kg

DRUGS (10)
  1. SYMBICORT [Suspect]
     Indication: EMPHYSEMA
     Route: 055
     Dates: start: 2006, end: 2009
  2. SYMBICORT [Suspect]
     Indication: EMPHYSEMA
     Route: 055
     Dates: start: 20130204
  3. UNKNOWN BLOOD PRESSURE MEDICATION [Suspect]
     Indication: BLOOD PRESSURE ABNORMAL
     Route: 065
  4. CARVEDILOL [Concomitant]
     Indication: OEDEMA PERIPHERAL
     Route: 048
  5. ASPIRIN [Concomitant]
     Indication: CARDIAC DISORDER
     Route: 048
     Dates: start: 2003
  6. FLUOXETINE [Concomitant]
     Indication: DEPRESSION
     Route: 048
     Dates: start: 1998
  7. VYTORIN [Concomitant]
     Indication: BLOOD CHOLESTEROL
     Dosage: 10/20 MG DAILY
     Route: 048
     Dates: start: 201205, end: 20130422
  8. LORAZEPAM [Concomitant]
     Indication: SLEEP DISORDER
     Route: 048
     Dates: start: 2007
  9. STOOL SOFTENER [Concomitant]
  10. VITAMIN D [Concomitant]

REACTIONS (2)
  - Local swelling [Recovered/Resolved]
  - Intentional drug misuse [Unknown]
